FAERS Safety Report 5975823-8 (Version None)
Quarter: 2008Q4

REPORT INFORMATION
  Report Type: 
  Country: None (occurrence: None)
  Receive Date: 20081202
  Receipt Date: 20080210
  Transmission Date: 20090506
  Serious: No
  Sender: FDA-Public Use
  Company Number: US-AMGEN-KDL264866

PATIENT
  Sex: Female

DRUGS (2)
  1. ENBREL [Suspect]
     Indication: PSORIATIC ARTHROPATHY
     Route: 058
     Dates: start: 20080124
  2. METHOTREXATE [Concomitant]
     Route: 048
     Dates: start: 20071001

REACTIONS (4)
  - COUGH [None]
  - IMPAIRED HEALING [None]
  - PARANASAL SINUS HYPERSECRETION [None]
  - PSORIATIC ARTHROPATHY [None]
